FAERS Safety Report 4638116-7 (Version None)
Quarter: 2005Q2

REPORT INFORMATION
  Report Type: 
  Country: None (occurrence: None)
  Receive Date: 20050418
  Receipt Date: 20050415
  Transmission Date: 20051028
  Serious: Yes (Life-Threatening, Congenital Anomaly, Other)
  Sender: FDA-Public Use
  Company Number: PHRM2005FR01298

PATIENT
  Age: 0 Day
  Sex: Female

DRUGS (2)
  1. CYTOTEC [Suspect]
     Dosage: UNK, UNK
     Route: 064
  2. METHERGINE [Suspect]
     Route: 064

REACTIONS (9)
  - APGAR SCORE LOW [None]
  - CLEFT PALATE [None]
  - DRUG EXPOSURE DURING PREGNANCY [None]
  - GLOSSOPTOSIS [None]
  - MICROGNATHIA [None]
  - PATENT DUCTUS ARTERIOSUS [None]
  - PIERRE ROBIN SYNDROME [None]
  - SMALL FOR DATES BABY [None]
  - VENTRICULAR SEPTAL DEFECT [None]
